FAERS Safety Report 6451299-1 (Version None)
Quarter: 2009Q4

REPORT INFORMATION
  Report Type: 
  Country: None (occurrence: None)
  Receive Date: 20091123
  Receipt Date: 20090326
  Transmission Date: 20100525
  Serious: Yes (Hospitalization, Other)
  Sender: FDA-Public Use
  Company Number: US-AMGEN-QUU340410

PATIENT
  Sex: Female

DRUGS (3)
  1. ENBREL [Suspect]
     Indication: RHEUMATOID ARTHRITIS
     Dates: start: 20040905
  2. PLAQUENIL [Concomitant]
     Route: 048
  3. HUMIRA [Concomitant]

REACTIONS (7)
  - DYSPNOEA [None]
  - ENDOMETRIAL CANCER STAGE IV [None]
  - METASTASES TO LUNG [None]
  - PYREXIA [None]
  - RHEUMATOID ARTHRITIS [None]
  - THERAPEUTIC RESPONSE DECREASED [None]
  - UTERINE LEIOMYOMA [None]
